FAERS Safety Report 12887813 (Version 1)
Quarter: 2016Q4

REPORT INFORMATION
  Report Type: Spontaneous
  Country: US (occurrence: US)
  Receive Date: 20161027
  Receipt Date: 20161027
  Transmission Date: 20170207
  Serious: Yes (Hospitalization)
  Sender: FDA-Public Use
  Company Number: US-BEH-2016074565

PATIENT
  Sex: Female
  Weight: 72.56 kg

DRUGS (8)
  1. BERINERT [Suspect]
     Active Substance: HUMAN C1-ESTERASE INHIBITOR
     Indication: HEREDITARY ANGIOEDEMA
     Dosage: 1500 IU, TIW
     Route: 042
     Dates: start: 20150102
  2. CLARITIN [Concomitant]
     Active Substance: LORATADINE
  3. LIDOCAINE/PRILOCAINE [Concomitant]
     Active Substance: LIDOCAINE\PRILOCAINE
  4. SODIUM CHLORIDE. [Concomitant]
     Active Substance: SODIUM CHLORIDE
  5. EPIPEN [Concomitant]
     Active Substance: EPINEPHRINE
  6. HEPARIN [Concomitant]
     Active Substance: HEPARIN SODIUM
  7. NORMAL SALINE [Concomitant]
     Active Substance: SODIUM CHLORIDE
  8. PRILOSEC [Concomitant]
     Active Substance: OMEPRAZOLE MAGNESIUM

REACTIONS (1)
  - Device related infection [Unknown]
